FAERS Safety Report 17424061 (Version 1)
Quarter: 2020Q1

REPORT INFORMATION
  Report Type: Report from Study
  Country: None (occurrence: CA)
  Receive Date: 20200217
  Receipt Date: 20200217
  Transmission Date: 20200409
  Serious: Yes (Hospitalization)
  Sender: FDA-Public Use
  Company Number: CA-ABBVIE-20K-028-3265098-00

PATIENT
  Sex: Male

DRUGS (1)
  1. IMBRUVICA [Suspect]
     Active Substance: IBRUTINIB
     Indication: DIFFUSE LARGE B-CELL LYMPHOMA
     Dosage: STRENGTH = 140 MG
     Route: 048
     Dates: start: 20200108, end: 2020

REACTIONS (4)
  - Brain neoplasm [Unknown]
  - Product use in unapproved indication [Unknown]
  - Off label use [Unknown]
  - Bone marrow disorder [Unknown]
